FAERS Safety Report 22199551 (Version 2)
Quarter: 2023Q2

REPORT INFORMATION
  Report Type: Other
  Country: CA (occurrence: None)
  Receive Date: 20230412
  Receipt Date: 20230426
  Transmission Date: 20230721
  Serious: Yes (Other)
  Sender: FDA-Public Use
  Company Number: CA-ROCHE-3185753

PATIENT
  Age: 39 Year
  Sex: Female
  Weight: 200 kg

DRUGS (21)
  1. ACTEMRA [Suspect]
     Active Substance: TOCILIZUMAB
     Indication: Rheumatoid arthritis
     Route: 042
     Dates: start: 20220902, end: 20230405
  2. CAFFEINE [Concomitant]
     Active Substance: CAFFEINE
  3. CHROMIUM [Concomitant]
     Active Substance: CHROMIC CHLORIDE\CHROMIUM
  4. CODEINE PHOSPHATE [Concomitant]
     Active Substance: CODEINE PHOSPHATE
  5. COENZYME Q10 [Concomitant]
     Active Substance: DIETARY SUPPLEMENT\UBIDECARENONE
  6. CREON [Concomitant]
     Active Substance: PANCRELIPASE AMYLASE\PANCRELIPASE LIPASE\PANCRELIPASE PROTEASE
  7. FLUVOXAMINE MALEATE [Concomitant]
     Active Substance: FLUVOXAMINE MALEATE
  8. JARDIANCE [Concomitant]
     Active Substance: EMPAGLIFLOZIN
  9. METFORMIN [Concomitant]
     Active Substance: METFORMIN HYDROCHLORIDE
  10. METHYLPHENIDATE [Concomitant]
     Active Substance: METHYLPHENIDATE
  11. NIACINAMIDE [Concomitant]
     Active Substance: NIACINAMIDE
  12. OZEMPIC [Concomitant]
     Active Substance: SEMAGLUTIDE
  13. ASIAN GINSENG [Concomitant]
     Active Substance: ASIAN GINSENG
  14. PANTOTHENIC ACID [Concomitant]
     Active Substance: PANTOTHENIC ACID
  15. PLAQUENIL [Concomitant]
     Active Substance: HYDROXYCHLOROQUINE SULFATE
  16. RINVOQ [Concomitant]
     Active Substance: UPADACITINIB
  17. TAURINE [Concomitant]
     Active Substance: TAURINE
  18. TYLENOL WITH CODEINE [Concomitant]
     Active Substance: ACETAMINOPHEN\CODEINE PHOSPHATE
  19. VITAMIN B12 [Concomitant]
     Active Substance: CYANOCOBALAMIN
  20. VITAMIN B6 [Concomitant]
     Active Substance: PYRIDOXINE HYDROCHLORIDE
  21. VITAMIN B2 [Concomitant]
     Active Substance: RIBOFLAVIN

REACTIONS (10)
  - Abscess [Not Recovered/Not Resolved]
  - Gastrointestinal haemorrhage [Unknown]
  - Poor venous access [Unknown]
  - Heart rate increased [Unknown]
  - Oxygen saturation decreased [Unknown]
  - Blood pressure increased [Unknown]
  - Blood pressure fluctuation [Unknown]
  - Blood pressure systolic increased [Unknown]
  - Blood pressure systolic abnormal [Unknown]
  - Blood pressure diastolic increased [Unknown]

NARRATIVE: CASE EVENT DATE: 20220909
